FAERS Safety Report 5335198-4 (Version None)
Quarter: 2007Q2

REPORT INFORMATION
  Report Type: 
  Country: None (occurrence: None)
  Receive Date: 20070525
  Receipt Date: 20070515
  Transmission Date: 20071010
  Serious: Yes (Other)
  Sender: FDA-Public Use
  Company Number: BR-PFIZER INC-2007028199

PATIENT
  Sex: Male

DRUGS (5)
  1. DOSTINEX [Suspect]
     Indication: PITUITARY TUMOUR
     Route: 048
  2. PURAN T4 [Concomitant]
     Route: 048
  3. TESTOSTERONE [Concomitant]
  4. SIBUTRAMINE [Concomitant]
     Route: 048
  5. CIPROFIBRATE [Concomitant]
     Route: 048

REACTIONS (10)
  - ALOPECIA [None]
  - BLOOD PROLACTIN DECREASED [None]
  - BLOOD TESTOSTERONE DECREASED [None]
  - CONSTIPATION [None]
  - DRUG INEFFECTIVE [None]
  - FATIGUE [None]
  - HYPOAESTHESIA ORAL [None]
  - JOINT DISLOCATION [None]
  - MALAISE [None]
  - OILY SKIN [None]
